FAERS Safety Report 20795410 (Version 2)
Quarter: 2022Q2

REPORT INFORMATION
  Report Type: Spontaneous
  Country: CA (occurrence: CA)
  Receive Date: 20220506
  Receipt Date: 20220512
  Transmission Date: 20220721
  Serious: Yes (Hospitalization, Disabling)
  Sender: FDA-Public Use
  Company Number: CA-PFIZER INC-202200661140

PATIENT
  Sex: Male

DRUGS (2)
  1. LYRICA [Suspect]
     Active Substance: PREGABALIN
     Indication: Anxiety
     Dosage: UNK
  2. LYRICA [Suspect]
     Active Substance: PREGABALIN
     Dosage: UNK,TAPERING THE DOSE

REACTIONS (14)
  - Skin burning sensation [Not Recovered/Not Resolved]
  - Negative thoughts [Not Recovered/Not Resolved]
  - Diplopia [Not Recovered/Not Resolved]
  - Visual impairment [Not Recovered/Not Resolved]
  - Nausea [Not Recovered/Not Resolved]
  - Feeding disorder [Unknown]
  - Sleep disorder [Not Recovered/Not Resolved]
  - Loss of personal independence in daily activities [Unknown]
  - Dizziness [Unknown]
  - Vertigo [Unknown]
  - Amnesia [Unknown]
  - Confusional state [Unknown]
  - Off label use [Unknown]
  - Drug ineffective for unapproved indication [Unknown]
